FAERS Safety Report 4938665-8 (Version None)
Quarter: 2006Q1

REPORT INFORMATION
  Report Type: 
  Country: None (occurrence: None)
  Receive Date: 20060309
  Receipt Date: 20060228
  Transmission Date: 20060701
  Serious: Yes (Other)
  Sender: FDA-Public Use
  Company Number: FR-ABBOTT-06P-056-0327225-00

PATIENT
  Age: 8 Year
  Sex: Male
  Weight: 29 kg

DRUGS (6)
  1. SEVOFLURANE [Suspect]
     Indication: INDUCTION OF ANAESTHESIA
     Route: 055
  2. SEVOFLURANE [Suspect]
     Indication: MAINTENANCE OF ANAESTHESIA
     Dosage: 2.8-3%
     Route: 055
  3. FENTANYL CITRATE [Concomitant]
     Indication: DRUG USE FOR UNKNOWN INDICATION
     Dosage: BOLUS
     Route: 042
  4. ATRACURIUM [Concomitant]
     Indication: DRUG USE FOR UNKNOWN INDICATION
  5. MIDAZOLAM HCL [Concomitant]
     Indication: DRUG USE FOR UNKNOWN INDICATION
     Dosage: BOLUS
     Route: 042
  6. PROPOFOL [Concomitant]
     Route: 042

REACTIONS (1)
  - TORSADE DE POINTES [None]
